FAERS Safety Report 6705041-7 (Version None)
Quarter: 2010Q2

REPORT INFORMATION
  Report Type: 
  Country: None (occurrence: None)
  Receive Date: 20100430
  Receipt Date: 20100420
  Transmission Date: 20101027
  Serious: Yes (Hospitalization)
  Sender: FDA-Public Use
  Company Number: B0648407A

PATIENT
  Sex: Female

DRUGS (8)
  1. DEROXAT [Suspect]
     Indication: DRUG USE FOR UNKNOWN INDICATION
     Dosage: 10MG PER DAY
     Route: 048
     Dates: end: 20100316
  2. CORDARONE [Suspect]
     Indication: DRUG USE FOR UNKNOWN INDICATION
     Dosage: 200MG PER DAY
     Route: 048
     Dates: start: 20100301, end: 20100316
  3. TAVANIC [Concomitant]
     Dosage: 500MG TWICE PER DAY
     Route: 048
     Dates: start: 20100309, end: 20100314
  4. TANAKAN [Concomitant]
     Dosage: 1UNIT THREE TIMES PER DAY
     Route: 048
  5. MODOPAR [Concomitant]
     Indication: PARKINSON'S DISEASE
     Dosage: 125MG FOUR TIMES PER DAY
     Route: 048
  6. PREVISCAN [Concomitant]
     Indication: ATRIAL FIBRILLATION
     Dosage: 20MG PER DAY
     Route: 048
     Dates: start: 20100301, end: 20100316
  7. ZYRTEC [Concomitant]
     Route: 065
     Dates: start: 20100309
  8. VITAMIN K TAB [Concomitant]
     Route: 065
     Dates: start: 20100301

REACTIONS (15)
  - ABNORMAL BEHAVIOUR [None]
  - AGITATION [None]
  - COMMUNICATION DISORDER [None]
  - CONFUSIONAL STATE [None]
  - DELUSION [None]
  - DISSOCIATION [None]
  - DISTURBANCE IN ATTENTION [None]
  - DRUG LEVEL INCREASED [None]
  - ELECTROENCEPHALOGRAM ABNORMAL [None]
  - EPILEPSY [None]
  - INAPPROPRIATE AFFECT [None]
  - LOGORRHOEA [None]
  - MYOCLONUS [None]
  - PERSEVERATION [None]
  - TREMOR [None]
